FAERS Safety Report 11747996 (Version 3)
Quarter: 2016Q1

REPORT INFORMATION
  Report Type: Spontaneous
  Country: US (occurrence: US)
  Receive Date: 20151117
  Receipt Date: 20160113
  Transmission Date: 20160525
  Serious: Yes (Hospitalization, Other)
  Sender: FDA-Public Use
  Company Number: US-GLAXOSMITHKLINE-US2015161730

PATIENT
  Sex: Female

DRUGS (18)
  1. MUCINEX [Concomitant]
     Active Substance: GUAIFENESIN
  2. VITAMIN B12 [Concomitant]
     Active Substance: CYANOCOBALAMIN
  3. ANUSOL NOS [Concomitant]
     Active Substance: BALSAM PERU\BENZYL BENZOATE\BISMUTH HYDROXIDE\BISMUTH SUBGALLATE\HYDROCORTISONE ACETATE\ZINC OXIDE
  4. LOSARTAN. [Concomitant]
     Active Substance: LOSARTAN
  5. CALCIUM [Concomitant]
     Active Substance: CALCIUM
  6. PENTASA [Concomitant]
     Active Substance: MESALAMINE
  7. CODEINE [Suspect]
     Active Substance: CODEINE
     Indication: PRODUCT USED FOR UNKNOWN INDICATION
  8. SIMVASTATIN. [Concomitant]
     Active Substance: SIMVASTATIN
  9. FLUTICASONE NASAL SPRAY [Concomitant]
     Active Substance: FLUTICASONE\FLUTICASONE PROPIONATE
  10. MERCAPTOPURINE. [Concomitant]
     Active Substance: MERCAPTOPURINE
  11. ESTER C [Concomitant]
  12. ADVAIR DISKUS [Suspect]
     Active Substance: FLUTICASONE PROPIONATE\SALMETEROL XINAFOATE
     Dosage: UNK
  13. MORPHINE [Suspect]
     Active Substance: MORPHINE
     Indication: PRODUCT USED FOR UNKNOWN INDICATION
  14. CULTURELLE [Concomitant]
     Active Substance: LACTOBACILLUS RHAMNOSUS
  15. ADVAIR DISKUS [Suspect]
     Active Substance: FLUTICASONE PROPIONATE\SALMETEROL XINAFOATE
     Indication: CHRONIC OBSTRUCTIVE PULMONARY DISEASE
     Dosage: 1 PUFF(S), BID
     Route: 055
     Dates: start: 2010
  16. LEVOTHYROXINE. [Concomitant]
     Active Substance: LEVOTHYROXINE
  17. POTASSIUM [Concomitant]
     Active Substance: POTASSIUM
  18. VITAMIN D3 [Concomitant]
     Active Substance: CHOLECALCIFEROL

REACTIONS (9)
  - Crohn^s disease [Unknown]
  - Atelectasis [Unknown]
  - Pneumothorax [Not Recovered/Not Resolved]
  - Pneumonia [Recovering/Resolving]
  - Malaise [Not Recovered/Not Resolved]
  - Chronic obstructive pulmonary disease [Unknown]
  - Drug hypersensitivity [Unknown]
  - Blood cholesterol [Unknown]
  - Fatigue [Not Recovered/Not Resolved]

NARRATIVE: CASE EVENT DATE: 2014
